FAERS Safety Report 4530663-1 (Version None)
Quarter: 2004Q4

REPORT INFORMATION
  Report Type: 
  Country: None (occurrence: None)
  Receive Date: 20041216
  Receipt Date: 20041129
  Transmission Date: 20050328
  Serious: Yes (Disabling, Other)
  Sender: FDA-Public Use
  Company Number: US_0411108697

PATIENT
  Age: 71 Year
  Sex: Male

DRUGS (4)
  1. KEFLEX [Suspect]
     Indication: NASOPHARYNGITIS
     Dosage: 750 MG
     Dates: start: 20041103, end: 20041110
  2. IBUPROFEN [Concomitant]
  3. LOXOPROFEN SODIUM [Concomitant]
  4. L-GLUTAMINE [Concomitant]

REACTIONS (3)
  - ANURIA [None]
  - HAEMODIALYSIS [None]
  - RENAL FAILURE ACUTE [None]
